FAERS Safety Report 4846724-3 (Version None)
Quarter: 2005Q4

REPORT INFORMATION
  Report Type: 
  Country: None (occurrence: None)
  Receive Date: 20051206
  Receipt Date: 20051114
  Transmission Date: 20060501
  Serious: Yes (Death, Other)
  Sender: FDA-Public Use
  Company Number: US-MERCK-0511USA02259

PATIENT
  Age: 73 Year
  Sex: Male
  Weight: 114 kg

DRUGS (5)
  1. VIOXX [Suspect]
     Indication: ARTHRALGIA
     Route: 048
     Dates: start: 20010101, end: 20030101
  2. ALEVE [Concomitant]
     Route: 048
  3. ADVIL [Concomitant]
     Route: 048
  4. ASPIRIN [Concomitant]
     Route: 048
  5. MOTRIN [Concomitant]
     Route: 048

REACTIONS (6)
  - CARDIAC DISORDER [None]
  - CARDIAC FAILURE CONGESTIVE [None]
  - CEREBROVASCULAR ACCIDENT [None]
  - DEATH [None]
  - LEG AMPUTATION [None]
  - MYOCARDIAL INFARCTION [None]
